FAERS Safety Report 7796310-0 (Version None)
Quarter: 2011Q4

REPORT INFORMATION
  Report Type: 
  Country: None (occurrence: None)
  Receive Date: 20111005
  Receipt Date: 20110928
  Transmission Date: 20120403
  Serious: Yes (Hospitalization)
  Sender: FDA-Public Use
  Company Number: US-BIOGENIDEC-2011BI006775

PATIENT
  Age: 36 Year
  Sex: Female

DRUGS (1)
  1. TYSABRI [Suspect]
     Indication: MULTIPLE SCLEROSIS
     Route: 042
     Dates: start: 20101208

REACTIONS (6)
  - URINARY TRACT INFECTION [None]
  - INCISION SITE INFECTION [None]
  - CLOSTRIDIAL INFECTION [None]
  - INCISION SITE ABSCESS [None]
  - INGUINAL HERNIA [None]
  - NEUROGENIC BLADDER [None]
